FAERS Safety Report 23983002 (Version 1)
Quarter: 2024Q2

REPORT INFORMATION
  Report Type: Spontaneous
  Country: JP (occurrence: JP)
  Receive Date: 20240617
  Receipt Date: 20240617
  Transmission Date: 20240716
  Serious: Yes (Other)
  Sender: FDA-Public Use
  Company Number: JP-SANDOZ-SDZ2024JP057842

PATIENT

DRUGS (6)
  1. RECLAST [Suspect]
     Active Substance: ZOLEDRONIC ACID
     Indication: Product used for unknown indication
     Dosage: 5 MILLIGRAM(S), IN 1 YEAR
     Route: 041
     Dates: start: 2018
  2. RECLAST [Suspect]
     Active Substance: ZOLEDRONIC ACID
     Dosage: 5 MILLIGRAM(S), IN 1 YEAR
     Route: 041
     Dates: start: 2019
  3. RECLAST [Suspect]
     Active Substance: ZOLEDRONIC ACID
     Dosage: 5 MILLIGRAM(S), IN 1 YEAR
     Route: 041
     Dates: start: 2020
  4. RECLAST [Suspect]
     Active Substance: ZOLEDRONIC ACID
     Dosage: 5 MILLIGRAM(S), IN 1 YEAR
     Route: 041
     Dates: start: 2021
  5. RECLAST [Suspect]
     Active Substance: ZOLEDRONIC ACID
     Dosage: 5 MILLIGRAM(S), IN 1 YEAR
     Route: 041
     Dates: start: 2022
  6. RECLAST [Suspect]
     Active Substance: ZOLEDRONIC ACID
     Dosage: 5 MILLIGRAM(S), IN 1 YEAR
     Route: 041
     Dates: start: 2023

REACTIONS (2)
  - Atypical femur fracture [Unknown]
  - Bone disorder [Unknown]

NARRATIVE: CASE EVENT DATE: 20230101
